FAERS Safety Report 8372721-X (Version None)
Quarter: 2012Q2

REPORT INFORMATION
  Report Type: 
  Country: None (occurrence: None)
  Receive Date: 20120521
  Receipt Date: 20120514
  Transmission Date: 20120825
  Serious: No
  Sender: FDA-Public Use
  Company Number: US-BAYER-2012-049009

PATIENT

DRUGS (1)
  1. MAGNEVIST [Suspect]
     Dosage: 15 ML

REACTIONS (2)
  - VOMITING [None]
  - NAUSEA [None]
